FAERS Safety Report 11799050 (Version 1)
Quarter: 2015Q4

REPORT INFORMATION
  Report Type: Spontaneous
  Country: HR (occurrence: HR)
  Receive Date: 20151203
  Receipt Date: 20151203
  Transmission Date: 20160305
  Serious: Yes (Other)
  Sender: FDA-Public Use
  Company Number: HR-BAYER-2015-475491

PATIENT
  Age: 54 Year
  Sex: Female
  Weight: 70 kg

DRUGS (5)
  1. LACIPIL [Concomitant]
     Active Substance: LACIDIPINE
     Indication: HYPERTENSION
     Dosage: 4 MG, QD
     Route: 048
     Dates: start: 201411
  2. EUTHYROX [Interacting]
     Active Substance: LEVOTHYROXINE SODIUM
     Indication: POST PROCEDURAL HYPOTHYROIDISM
     Dosage: 100 ?G, QD
     Route: 048
     Dates: start: 201503
  3. DETRUNORM [Concomitant]
     Indication: INCONTINENCE
     Dosage: 15 MG, BID
     Route: 048
     Dates: start: 201207
  4. BETAFERON COMBIPACK [Suspect]
     Active Substance: INTERFERON BETA-1B
     Indication: MULTIPLE SCLEROSIS
     Dosage: 9.6 MIU, QD
     Route: 058
     Dates: start: 200307, end: 201503
  5. PERINDOPRIL ERBUMINE. [Concomitant]
     Active Substance: PERINDOPRIL ERBUMINE
     Indication: HYPERTENSION
     Dosage: 5 MG, QD
     Route: 048
     Dates: start: 201411

REACTIONS (3)
  - Influenza like illness [Recovered/Resolved]
  - Hypertensive crisis [Recovered/Resolved]
  - Drug interaction [Recovered/Resolved]

NARRATIVE: CASE EVENT DATE: 201503
